FAERS Safety Report 9782366 (Version 3)
Quarter: 2014Q2

REPORT INFORMATION
  Report Type: Spontaneous
  Country: US (occurrence: US)
  Receive Date: 20131226
  Receipt Date: 20140429
  Transmission Date: 20141212
  Serious: Yes (Death, Other)
  Sender: FDA-Public Use
  Company Number: PHEH2013US026183

PATIENT
  Sex: Male
  Weight: 84 kg

DRUGS (10)
  1. ARCAPTA [Suspect]
     Indication: CHRONIC OBSTRUCTIVE PULMONARY DISEASE
     Dosage: 75 UG, QD ( 1 PUFF QD)
     Route: 055
     Dates: start: 20130101
  2. ARCAPTA [Suspect]
     Indication: FORCED EXPIRATORY VOLUME DECREASED
     Dosage: 75 UG, QD ( 1 PUFF QD)
     Route: 055
     Dates: start: 20130215
  3. ARCAPTA [Suspect]
     Indication: ASTHMA
  4. ARCAPTA [Suspect]
     Indication: LUNG DISORDER
  5. SPIRIVA [Concomitant]
     Dosage: 18 UG, 1 PUFF DAILY
     Route: 055
  6. SPIRIVA [Concomitant]
     Dosage: 18 UG, 1 PUFF DAILY
     Route: 055
     Dates: start: 20130215
  7. ASMANEX [Concomitant]
     Dosage: 220 UG, 1 TO 2 INHALATIONS DAILY
     Route: 055
  8. ASMANEX [Concomitant]
     Dosage: 220 UG, 1 TO 2 INHALATIONS DAILY
     Route: 055
     Dates: start: 20130215
  9. XOPENEX HFA [Concomitant]
     Dosage: UKN, PRN (1 TO 2 PUFFS EVERY 4 TO 10 HOURS)
     Route: 055
  10. DULERA [Concomitant]
     Dosage: UNK
     Dates: start: 20130215

REACTIONS (3)
  - Myocardial infarction [Fatal]
  - Sneezing [Unknown]
  - Nasal congestion [Unknown]
